FAERS Safety Report 5394064-9 (Version None)
Quarter: 2007Q3

REPORT INFORMATION
  Report Type: 
  Country: None (occurrence: None)
  Receive Date: 20070723
  Receipt Date: 20070216
  Transmission Date: 20080115
  Serious: No
  Sender: FDA-Public Use
  Company Number: A0640151A

PATIENT
  Age: 73 Year
  Sex: Female

DRUGS (6)
  1. AVANDIA [Suspect]
     Dates: start: 20060101
  2. LANTUS [Suspect]
     Dosage: 25ML TWICE PER DAY
     Dates: start: 20060922
  3. DIOVAN [Concomitant]
  4. HERBAL SUPPLEMENTS [Concomitant]
  5. HUMULIN 70/30 [Concomitant]
  6. INSULIN [Concomitant]

REACTIONS (2)
  - BLOOD GLUCOSE INCREASED [None]
  - WEIGHT INCREASED [None]
